FAERS Safety Report 11914111 (Version 1)
Quarter: 2016Q1

REPORT INFORMATION
  Report Type: Report from Study
  Country: US (occurrence: US)
  Receive Date: 20160113
  Receipt Date: 20160113
  Transmission Date: 20160526
  Serious: Yes (Hospitalization)
  Sender: FDA-Public Use
  Company Number: PHEH2016US000543

PATIENT
  Sex: Male
  Weight: 136 kg

DRUGS (1)
  1. TASIGNA [Suspect]
     Active Substance: NILOTINIB
     Indication: CHRONIC MYELOID LEUKAEMIA
     Dosage: 400 MG, BID
     Route: 065

REACTIONS (8)
  - Decreased appetite [Unknown]
  - Mucosal dryness [Unknown]
  - Asthenia [Unknown]
  - Arthralgia [Unknown]
  - Dehydration [Recovering/Resolving]
  - Blood glucose increased [Unknown]
  - Fall [Recovering/Resolving]
  - Depression [Unknown]
